FAERS Safety Report 10654043 (Version 1)
Quarter: 2014Q4

REPORT INFORMATION
  Report Type: Spontaneous
  Country: US (occurrence: None)
  Receive Date: 20141215
  Receipt Date: 20141215
  Transmission Date: 20150529
  Serious: Yes (Hospitalization)
  Sender: FDA-Public Use
  Company Number: None

PATIENT
  Age: 62 Year
  Sex: Male
  Weight: 83.5 kg

DRUGS (4)
  1. XARELTO [Suspect]
     Active Substance: RIVAROXABAN
     Indication: DEEP VEIN THROMBOSIS
     Dosage: 1, QD, ORAL
     Route: 048
     Dates: start: 20141205, end: 20141210
  2. TOPAMAX [Concomitant]
     Active Substance: TOPIRAMATE
  3. KEPPRA [Concomitant]
     Active Substance: LEVETIRACETAM
  4. DEPAKOTE ER [Concomitant]
     Active Substance: DIVALPROEX SODIUM

REACTIONS (1)
  - Haemorrhage urinary tract [None]

NARRATIVE: CASE EVENT DATE: 20141210
